FAERS Safety Report 10040921 (Version 1)
Quarter: 2014Q1

REPORT INFORMATION
  Report Type: Spontaneous
  Country: US (occurrence: US)
  Receive Date: 20140327
  Receipt Date: 20140327
  Transmission Date: 20141002
  Serious: No
  Sender: FDA-Public Use
  Company Number: US-PFIZER INC-2014084477

PATIENT
  Age: 56 Year
  Sex: Female

DRUGS (3)
  1. VENLAFAXINE ER [Suspect]
     Indication: DEPRESSION
     Dosage: 300 MG, 1X/DAY
  2. VENLAFAXINE ER [Suspect]
     Indication: BIPOLAR DISORDER
  3. CLONAZEPAM [Suspect]
     Dosage: 1 MG, 3X/DAY

REACTIONS (1)
  - Glucose tolerance impaired [Unknown]
